FAERS Safety Report 5904101-8 (Version None)
Quarter: 2008Q3

REPORT INFORMATION
  Report Type: 
  Country: None (occurrence: None)
  Receive Date: 20080919
  Receipt Date: 20080709
  Transmission Date: 20090109
  Serious: No
  Sender: FDA-Public Use
  Company Number: US-WYE-H05015908

PATIENT
  Age: 45 Year
  Sex: Male
  Weight: 77.18 kg

DRUGS (7)
  1. PRISTIQ [Suspect]
     Indication: ANXIETY
     Dosage: 50 MG 1X PER 1 DAY, ORAL
     Route: 048
     Dates: start: 20080707
  2. PRISTIQ [Suspect]
     Indication: DEPRESSION
     Dosage: 50 MG 1X PER 1 DAY, ORAL
     Route: 048
     Dates: start: 20080707
  3. TOPROL-XL [Concomitant]
  4. NEURONTIN [Concomitant]
  5. HYDROCODONE (HYDROCODONE) [Concomitant]
  6. WELLBUTRIN [Concomitant]
  7. KLONOPIN [Concomitant]

REACTIONS (1)
  - YAWNING [None]
